FAERS Safety Report 8160362-9 (Version None)
Quarter: 2012Q1

REPORT INFORMATION
  Report Type: 
  Country: None (occurrence: None)
  Receive Date: 20120223
  Receipt Date: 20120216
  Transmission Date: 20120608
  Serious: Yes (Death)
  Sender: FDA-Public Use
  Company Number: ES-NAPPMUNDI-GBR-2012-0009812

PATIENT
  Age: 74 Year
  Sex: Female

DRUGS (6)
  1. FENTANYL [Interacting]
     Indication: METASTATIC PAIN
     Dosage: 100 MCG, Q72H
     Route: 062
     Dates: start: 20090501
  2. CITALOPRAM HYDROBROMIDE [Concomitant]
     Dosage: 20 MG, UNK
     Route: 065
  3. MORPHINE SULFATE [Suspect]
     Indication: METASTATIC PAIN
     Dosage: 20 MG, UNK
     Route: 048
     Dates: start: 20090501
  4. LYRICA [Concomitant]
     Dosage: 75 MG, Q12H
     Route: 065
  5. LEXATIN                            /00424801/ [Concomitant]
     Dosage: 1.5 MG, UNK
     Route: 065
  6. OMEPRAZOLE [Concomitant]
     Dosage: 20 MG, UNK
     Route: 065

REACTIONS (5)
  - HYPERSOMNIA [None]
  - RESPIRATORY DEPRESSION [None]
  - DRUG INTERACTION [None]
  - CONSTIPATION [None]
  - DEATH [None]
